FAERS Safety Report 11492263 (Version 2)
Quarter: 2015Q4

REPORT INFORMATION
  Report Type: Spontaneous
  Country: US (occurrence: US)
  Receive Date: 20150910
  Receipt Date: 20151007
  Transmission Date: 20160304
  Serious: Yes (Other)
  Sender: FDA-Public Use
  Company Number: US-PFIZER INC-2015292318

PATIENT
  Sex: Female

DRUGS (4)
  1. KEPPRA [Suspect]
     Active Substance: LEVETIRACETAM
     Indication: SEIZURE
     Dosage: 1500 TWICE A DAY
  2. NEURONTIN [Suspect]
     Active Substance: GABAPENTIN
     Dosage: 900, 3X/DAY
  3. NEURONTIN [Suspect]
     Active Substance: GABAPENTIN
     Dosage: 600, 2X/DAY AND 900 AT NIGHT
  4. NEURONTIN [Suspect]
     Active Substance: GABAPENTIN
     Indication: SEIZURE
     Dosage: UNK, 3X/DAY

REACTIONS (7)
  - Drug ineffective [Unknown]
  - Infection [Unknown]
  - Therapeutic response unexpected [Unknown]
  - Vitamin D decreased [Unknown]
  - Pre-existing condition improved [Unknown]
  - Fatigue [Unknown]
  - Vitamin B12 decreased [Unknown]
